FAERS Safety Report 26213713 (Version 1)
Quarter: 2025Q4

REPORT INFORMATION
  Report Type: Spontaneous
  Country: KR (occurrence: KR)
  Receive Date: 20251230
  Receipt Date: 20251230
  Transmission Date: 20260117
  Serious: Yes (Other)
  Sender: MYLAN
  Company Number: KR-MYLANLABS-2025M1109923

PATIENT
  Sex: Male

DRUGS (4)
  1. CELEBREX [Suspect]
     Active Substance: CELECOXIB
     Indication: Product used for unknown indication
     Dosage: 100 MILLIGRAM, QD
     Route: 061
     Dates: start: 20231201, end: 20231201
  2. CELEBREX [Suspect]
     Active Substance: CELECOXIB
     Dosage: 100 MILLIGRAM, QD
     Route: 048
     Dates: start: 20231201, end: 20231201
  3. CELEBREX [Suspect]
     Active Substance: CELECOXIB
     Dosage: 100 MILLIGRAM, QD
     Route: 048
     Dates: start: 20231201, end: 20231201
  4. CELEBREX [Suspect]
     Active Substance: CELECOXIB
     Dosage: 100 MILLIGRAM, QD
     Route: 061
     Dates: start: 20231201, end: 20231201

REACTIONS (3)
  - Haematochezia [Unknown]
  - Visual impairment [Unknown]
  - Dizziness [Unknown]

NARRATIVE: CASE EVENT DATE: 20231201
